FAERS Safety Report 10412579 (Version 2)
Quarter: 2014Q3

REPORT INFORMATION
  Report Type: Spontaneous
  Country: US (occurrence: US)
  Receive Date: 20140827
  Receipt Date: 20140902
  Transmission Date: 20150326
  Serious: Yes (Hospitalization)
  Sender: FDA-Public Use
  Company Number: US-JNJFOC-20140820680

PATIENT
  Sex: Male

DRUGS (1)
  1. EXTRA STRENGTH BENADRYL ITCH COOLING [Suspect]
     Active Substance: DIPHENHYDRAMINE HYDROCHLORIDE\ZINC ACETATE
     Indication: PRURITUS
     Route: 061

REACTIONS (1)
  - Urticaria [Not Recovered/Not Resolved]
